FAERS Safety Report 23816241 (Version 3)
Quarter: 2024Q2

REPORT INFORMATION
  Report Type: Spontaneous
  Country: US (occurrence: US)
  Receive Date: 20240503
  Receipt Date: 20240614
  Transmission Date: 20240716
  Serious: Yes (Other)
  Sender: FDA-Public Use
  Company Number: US-PFIZER INC-202400098775

PATIENT
  Age: 87 Year
  Sex: Female
  Weight: 70.31 kg

DRUGS (2)
  1. ESTRING [Suspect]
     Active Substance: ESTRADIOL
     Indication: Vaginal haemorrhage
     Dosage: SOMETIMES IT IS 4 MONTHS SOMETIMES 3
  2. ESTRING [Suspect]
     Active Substance: ESTRADIOL
     Indication: Vulvovaginal dryness

REACTIONS (5)
  - Poor quality device used [Unknown]
  - Expired device used [Unknown]
  - Device use issue [Unknown]
  - Off label use [Unknown]
  - Drug ineffective for unapproved indication [Unknown]
